FAERS Safety Report 9649098 (Version 1)
Quarter: 2013Q4

REPORT INFORMATION
  Report Type: Spontaneous
  Country: PL (occurrence: PL)
  Receive Date: 20131028
  Receipt Date: 20131028
  Transmission Date: 20140711
  Serious: Yes (Other)
  Sender: FDA-Public Use
  Company Number: PHHY2013PL119885

PATIENT
  Age: 41 Year
  Sex: Female

DRUGS (4)
  1. SANDIMMUN NEORAL [Suspect]
     Indication: RENAL TRANSPLANT
  2. ENCORTON [Concomitant]
     Dosage: 5 MG,
     Dates: start: 20020823
  3. ZENAPAX [Concomitant]
  4. MYCOPHENOLATE MOFETIL [Concomitant]

REACTIONS (7)
  - Gastric ulcer [Recovered/Resolved]
  - Oesophageal rupture [Recovered/Resolved]
  - Ischaemic stroke [Recovered/Resolved]
  - Acute myocardial infarction [Recovered/Resolved]
  - Kidney transplant rejection [Recovered/Resolved]
  - Helicobacter infection [Unknown]
  - Abdominal pain [Recovered/Resolved]
